FAERS Safety Report 22818860 (Version 6)
Quarter: 2025Q2

REPORT INFORMATION
  Report Type: Report from Study
  Country: CA (occurrence: CA)
  Receive Date: 20230814
  Receipt Date: 20250617
  Transmission Date: 20250716
  Serious: Yes (Hospitalization, Other)
  Sender: TAKEDA
  Company Number: CA-TAKEDA-2023TUS078717

PATIENT
  Sex: Male

DRUGS (3)
  1. VEDOLIZUMAB [Suspect]
     Active Substance: VEDOLIZUMAB
     Indication: Crohn^s disease
  2. VEDOLIZUMAB [Suspect]
     Active Substance: VEDOLIZUMAB
     Indication: Crohn^s disease
     Dosage: 108 MILLIGRAM, Q2WEEKS
     Dates: start: 20231004
  3. FERROUS SULFATE [Concomitant]
     Active Substance: FERROUS SULFATE

REACTIONS (6)
  - Intestinal obstruction [Recovering/Resolving]
  - Clostridium difficile infection [Recovered/Resolved]
  - Diarrhoea [Recovering/Resolving]
  - Defaecation urgency [Unknown]
  - Faeces soft [Unknown]
  - Tooth abscess [Unknown]
